FAERS Safety Report 19695407 (Version 1)
Quarter: 2021Q3

REPORT INFORMATION
  Report Type: Spontaneous
  Country: US (occurrence: US)
  Receive Date: 20210813
  Receipt Date: 20210813
  Transmission Date: 20211014
  Serious: Yes (Hospitalization)
  Sender: FDA-Public Use
  Company Number: US-LEADINGPHARMA-US-2021LEALIT00251

PATIENT
  Age: 72 Year
  Sex: Male

DRUGS (7)
  1. LOPERAMIDE [Concomitant]
     Active Substance: LOPERAMIDE
     Indication: METASTATIC RENAL CELL CARCINOMA
     Route: 065
  2. CAMPHORATED TINCTURE OF OPIUM [Concomitant]
     Indication: DIARRHOEA
     Route: 065
  3. CABOZANTINIB [Concomitant]
     Active Substance: CABOZANTINIB
     Route: 065
  4. CABOZANTINIB [Concomitant]
     Active Substance: CABOZANTINIB
     Indication: METASTATIC RENAL CELL CARCINOMA
     Route: 065
  5. CROFELEMER [Concomitant]
     Active Substance: CROFELEMER
     Indication: DIARRHOEA
     Route: 065
  6. CABOZANTINIB [Concomitant]
     Active Substance: CABOZANTINIB
     Route: 065
  7. DIPHENOXYLATE HYDROCHLORIDE AND ATROPINE SULFATE [Suspect]
     Active Substance: ATROPINE SULFATE\DIPHENOXYLATE HYDROCHLORIDE
     Indication: VOMITING
     Route: 065

REACTIONS (1)
  - Drug ineffective [Unknown]
